FAERS Safety Report 10081687 (Version 1)
Quarter: 2014Q2

REPORT INFORMATION
  Report Type: Spontaneous
  Country: US (occurrence: US)
  Receive Date: 20140416
  Receipt Date: 20140416
  Transmission Date: 20141212
  Serious: Yes (Other)
  Sender: FDA-Public Use
  Company Number: US-PURDUE-USA-2014-0112926

PATIENT
  Sex: Male

DRUGS (2)
  1. OXYCODONE HYDROCHLORIDE (SIMILAR TO NDA 22-272) [Suspect]
     Indication: DRUG ABUSE
  2. AMPHETAMINE [Suspect]
     Indication: DRUG ABUSE

REACTIONS (5)
  - Homicide [Unknown]
  - Substance abuse [Unknown]
  - Abnormal behaviour [Unknown]
  - Screaming [Unknown]
  - Fall [Unknown]
